FAERS Safety Report 9374134 (Version 1)
Quarter: 2013Q2

REPORT INFORMATION
  Report Type: Spontaneous
  Country: US (occurrence: US)
  Receive Date: 20130628
  Receipt Date: 20130628
  Transmission Date: 20140414
  Serious: No
  Sender: FDA-Public Use
  Company Number: US-PFIZER INC-2013189332

PATIENT
  Sex: Male

DRUGS (1)
  1. FLECTOR [Suspect]
     Dosage: UNK, 2X/DAY
     Dates: start: 20130619, end: 20130623

REACTIONS (2)
  - Drug ineffective [Unknown]
  - Application site paraesthesia [Unknown]
